FAERS Safety Report 5304069-1 (Version None)
Quarter: 2007Q1

REPORT INFORMATION
  Report Type: 
  Country: None (occurrence: None)
  Receive Date: 20070201
  Receipt Date: 20061113
  Transmission Date: 20070707
  Serious: No
  Sender: FDA-Public Use
  Company Number: 2006PV025123

PATIENT
  Age: 58 Year
  Sex: Female

DRUGS (7)
  1. BYETTA [Suspect]
     Indication: DIABETES MELLITUS NON-INSULIN-DEPENDENT
     Dosage: 10 MCG; BID; SC
     Route: 058
     Dates: start: 20061111
  2. LYBURIDE [Concomitant]
  3. STARLIX [Concomitant]
  4. LISINOPRIL [Concomitant]
  5. IBUPROFEN PM [Concomitant]
  6. IBUPROFEN`` [Concomitant]
  7. SOMA [Concomitant]

REACTIONS (3)
  - BLOOD GLUCOSE INCREASED [None]
  - CONSTIPATION [None]
  - NAUSEA [None]
